FAERS Safety Report 7724776-0 (Version None)
Quarter: 2011Q3

REPORT INFORMATION
  Report Type: 
  Country: None (occurrence: None)
  Receive Date: 20110901
  Receipt Date: 20110830
  Transmission Date: 20111222
  Serious: Yes (Death, Life-Threatening, Other)
  Sender: FDA-Public Use
  Company Number: IT-ROXANE LABORATORIES, INC.-2011-RO-01195RO

PATIENT
  Age: 39 Year
  Sex: Male

DRUGS (2)
  1. PROPRANOLOL [Suspect]
     Indication: THYROTOXIC CRISIS
     Route: 042
  2. PROPRANOLOL [Suspect]
     Dosage: 5 MG
     Route: 042

REACTIONS (7)
  - CARDIOGENIC SHOCK [None]
  - SUPRAVENTRICULAR TACHYCARDIA [None]
  - MULTI-ORGAN FAILURE [None]
  - CARDIAC ARREST [None]
  - COMA [None]
  - ANURIA [None]
  - CARDIO-RESPIRATORY ARREST [None]
